FAERS Safety Report 9821127 (Version 1)
Quarter: 2014Q1

REPORT INFORMATION
  Report Type: Spontaneous
  Country: US (occurrence: None)
  Receive Date: 20140115
  Receipt Date: 20140115
  Transmission Date: 20141002
  Serious: Yes (Disabling)
  Sender: FDA-Public Use
  Company Number: None

PATIENT
  Age: 59 Year
  Sex: Male
  Weight: 140.62 kg

DRUGS (1)
  1. DULOXETINE [Suspect]
     Indication: MAJOR DEPRESSION
     Route: 048
     Dates: start: 20140113, end: 20140113

REACTIONS (7)
  - Product substitution issue [None]
  - Nausea [None]
  - Dizziness [None]
  - Disorientation [None]
  - Product formulation issue [None]
  - Drug effect decreased [None]
  - Overdose [None]
